FAERS Safety Report 13182681 (Version 2)
Quarter: 2017Q1

REPORT INFORMATION
  Report Type: Report from Study
  Country: NL (occurrence: NL)
  Receive Date: 20170203
  Receipt Date: 20170210
  Transmission Date: 20170428
  Serious: Yes (Hospitalization, Other)
  Sender: FDA-Public Use
  Company Number: NL-AMGEN-NLDSL2017014311

PATIENT
  Age: 62 Year
  Sex: Female

DRUGS (6)
  1. PRIMPERAN [Concomitant]
     Active Substance: METOCLOPRAMIDE HYDROCHLORIDE
     Dosage: 10 MG, QD
     Dates: start: 20161205, end: 20170124
  2. FOSFOMYCINE [Concomitant]
     Active Substance: FOSFOMYCIN
     Dosage: 3 G, QD
     Dates: start: 20161110, end: 20161110
  3. SODIUM LAURYL SULFATE W/SORBITOL [Concomitant]
     Dosage: 9/625MG/ML
     Dates: start: 20161128
  4. ACENOCOUMAROL [Concomitant]
     Active Substance: ACENOCOUMAROL
     Dosage: 1 MG, QD ACCORDING TO SCHEDULE AND USE ACCORDING TO SCHEDULE OF THROMBOSIS OFFICE
     Dates: start: 20150612
  5. XGEVA [Suspect]
     Active Substance: DENOSUMAB
     Indication: PRODUCT USED FOR UNKNOWN INDICATION
     Dosage: 120 MG, Q4WK
     Route: 058
     Dates: start: 20150619
  6. CALCIUM CARBONATE W/COLECALCIFEROL [Concomitant]
     Active Substance: CALCIUM CARBONATE\CHOLECALCIFEROL
     Dosage: 500 MG (1.25 G/400 IE), QD
     Dates: start: 20150612

REACTIONS (10)
  - Wound infection [Unknown]
  - Decreased appetite [Unknown]
  - Dyspnoea exertional [Unknown]
  - Asthenia [Unknown]
  - Febrile neutropenia [Unknown]
  - Xanthomatosis [Unknown]
  - Malaise [Unknown]
  - Thrombosis [Unknown]
  - Productive cough [Unknown]
  - Breast cancer metastatic [Unknown]

NARRATIVE: CASE EVENT DATE: 20150625
